FAERS Safety Report 24536266 (Version 1)
Quarter: 2024Q4

REPORT INFORMATION
  Report Type: Report from Study
  Country: CA (occurrence: CA)
  Receive Date: 20241022
  Receipt Date: 20241022
  Transmission Date: 20250115
  Serious: Yes (Other)
  Sender: JAZZ
  Company Number: CA-JAZZ PHARMACEUTICALS-2023-CA-025026

PATIENT
  Age: 47 Year
  Sex: Female

DRUGS (26)
  1. XYWAV [Suspect]
     Active Substance: CALCIUM OXYBATE\MAGNESIUM OXYBATE\POTASSIUM OXYBATE\SODIUM OXYBATE
     Indication: Cataplexy
     Dosage: 2.25 GRAM, BID
     Route: 048
     Dates: start: 20231217, end: 202405
  2. XYWAV [Suspect]
     Active Substance: CALCIUM OXYBATE\MAGNESIUM OXYBATE\POTASSIUM OXYBATE\SODIUM OXYBATE
     Dosage: 4.5 GRAM, BID
     Route: 048
     Dates: start: 20231217
  3. XYWAV [Suspect]
     Active Substance: CALCIUM OXYBATE\MAGNESIUM OXYBATE\POTASSIUM OXYBATE\SODIUM OXYBATE
     Dosage: UNK
     Dates: start: 20240426
  4. XYWAV [Suspect]
     Active Substance: CALCIUM OXYBATE\MAGNESIUM OXYBATE\POTASSIUM OXYBATE\SODIUM OXYBATE
     Dosage: 2.75 TWICE FOR ANOTHER 2 WEEKS
  5. XYWAV [Suspect]
     Active Substance: CALCIUM OXYBATE\MAGNESIUM OXYBATE\POTASSIUM OXYBATE\SODIUM OXYBATE
     Dosage: 2.5 GRAM, BID (5G/NIGHT DIVIDED INTO TWO EQUAL DOSES)
     Route: 048
     Dates: start: 202405, end: 20240624
  6. XYWAV [Suspect]
     Active Substance: CALCIUM OXYBATE\MAGNESIUM OXYBATE\POTASSIUM OXYBATE\SODIUM OXYBATE
     Dosage: 3 GRAM, BID
  7. XYWAV [Suspect]
     Active Substance: CALCIUM OXYBATE\MAGNESIUM OXYBATE\POTASSIUM OXYBATE\SODIUM OXYBATE
     Dosage: 3.25 GRAM, BID
     Route: 048
     Dates: start: 20240625, end: 20240630
  8. XYWAV [Suspect]
     Active Substance: CALCIUM OXYBATE\MAGNESIUM OXYBATE\POTASSIUM OXYBATE\SODIUM OXYBATE
     Dosage: 3.5 GRAM, BID
     Route: 048
     Dates: start: 20240701
  9. XYWAV [Suspect]
     Active Substance: CALCIUM OXYBATE\MAGNESIUM OXYBATE\POTASSIUM OXYBATE\SODIUM OXYBATE
     Dosage: 4 GRAM, BID
     Route: 048
     Dates: end: 202407
  10. XYWAV [Suspect]
     Active Substance: CALCIUM OXYBATE\MAGNESIUM OXYBATE\POTASSIUM OXYBATE\SODIUM OXYBATE
     Dosage: 3.75 GRAM
  11. XYWAV [Suspect]
     Active Substance: CALCIUM OXYBATE\MAGNESIUM OXYBATE\POTASSIUM OXYBATE\SODIUM OXYBATE
     Dosage: 3.75 GRAM
  12. SUNOSI [Concomitant]
     Active Substance: SOLRIAMFETOL
     Indication: Product used for unknown indication
     Dosage: UNK
  13. SUNOSI [Concomitant]
     Active Substance: SOLRIAMFETOL
     Dosage: UNK
  14. SUNOSI [Concomitant]
     Active Substance: SOLRIAMFETOL
     Dosage: UNK
  15. DIENOGEST [Concomitant]
     Active Substance: DIENOGEST
     Indication: Product used for unknown indication
     Dosage: UNK
  16. DIENOGEST [Concomitant]
     Active Substance: DIENOGEST
     Dosage: UNK
  17. DIENOGEST [Concomitant]
     Active Substance: DIENOGEST
     Dosage: UNK
  18. VITAMINS NOS [Concomitant]
     Active Substance: VITAMINS
     Indication: Product used for unknown indication
     Dosage: UNK
  19. VITAMINS NOS [Concomitant]
     Active Substance: VITAMINS
     Dosage: UNK
  20. VITAMINS NOS [Concomitant]
     Active Substance: VITAMINS
     Dosage: UNK
  21. VITAMIN D NOS [Concomitant]
     Active Substance: CHOLECALCIFEROL\ERGOCALCIFEROL
     Indication: Product used for unknown indication
     Dosage: UNK
  22. VITAMIN D NOS [Concomitant]
     Active Substance: CHOLECALCIFEROL\ERGOCALCIFEROL
     Dosage: UNK
  23. VITAMIN D NOS [Concomitant]
     Active Substance: CHOLECALCIFEROL\ERGOCALCIFEROL
     Dosage: UNK
  24. CALCIUM [Concomitant]
     Active Substance: CALCIUM
     Indication: Product used for unknown indication
     Dosage: UNK
  25. CALCIUM [Concomitant]
     Active Substance: CALCIUM
     Dosage: UNK
  26. CALCIUM [Concomitant]
     Active Substance: CALCIUM
     Dosage: UNK

REACTIONS (9)
  - Pneumonia [Recovered/Resolved]
  - Insomnia [Recovered/Resolved]
  - Influenza [Recovered/Resolved]
  - Streptococcal infection [Recovered/Resolved]
  - Nasopharyngitis [Recovered/Resolved]
  - Nausea [Unknown]
  - Gastrointestinal viral infection [Recovered/Resolved]
  - Oropharyngeal pain [Recovered/Resolved]
  - Off label use [Unknown]

NARRATIVE: CASE EVENT DATE: 20240723
